FAERS Safety Report 8781491 (Version 2)
Quarter: 2012Q4

REPORT INFORMATION
  Report Type: 
  Country: JP (occurrence: JP)
  Receive Date: 20120913
  Receipt Date: 20120924
  Transmission Date: 20130627
  Serious: No
  Sender: FDA-Public Use
  Company Number: PHHY2012JP079185

PATIENT
  Age: 64 Year
  Sex: Male

DRUGS (2)
  1. EXELON PATCH [Suspect]
     Indication: DEMENTIA ALZHEIMER^S TYPE
     Dosage: 13.5 mg, daily
     Route: 062
     Dates: start: 20120323, end: 20120814
  2. EXELON PATCH [Suspect]
     Dosage: UNK

REACTIONS (2)
  - Food poisoning [Unknown]
  - Gastroenteritis [Recovered/Resolved]
